FAERS Safety Report 13089456 (Version 1)
Quarter: 2017Q1

REPORT INFORMATION
  Report Type: Spontaneous
  Country: US (occurrence: US)
  Receive Date: 20170105
  Receipt Date: 20170105
  Transmission Date: 20170428
  Serious: No
  Sender: FDA-Public Use
  Company Number: US-PFIZER INC-2017000856

PATIENT
  Age: 60 Year
  Sex: Female

DRUGS (1)
  1. IBRANCE [Suspect]
     Active Substance: PALBOCICLIB
     Indication: BREAST CANCER FEMALE
     Dosage: 100 MG, CYCLIC (DAILY X21 DAYS THEN OFF 7 DAYS)
     Route: 048
     Dates: start: 20161209

REACTIONS (6)
  - Pain [Unknown]
  - Erythema [Unknown]
  - Skin irritation [Unknown]
  - Condition aggravated [Unknown]
  - Skin exfoliation [Unknown]
  - Eczema [Unknown]
